FAERS Safety Report 17397064 (Version 2)
Quarter: 2020Q1

REPORT INFORMATION
  Report Type: Spontaneous
  Country: US (occurrence: US)
  Receive Date: 20200210
  Receipt Date: 20200220
  Transmission Date: 20200409
  Serious: Yes (Death)
  Sender: FDA-Public Use
  Company Number: US-BIOVITRUM-2020US0309

PATIENT
  Sex: Male

DRUGS (1)
  1. ANAKINRA [Suspect]
     Active Substance: ANAKINRA
     Indication: GOUT
     Dosage: 8 COURSES OF 3 - 5 DAYS EACH

REACTIONS (7)
  - Pneumonia [Fatal]
  - Septic shock [Fatal]
  - Malaise [Unknown]
  - Off label use [Unknown]
  - Clostridium difficile infection [Fatal]
  - Renal failure [Fatal]
  - Dizziness [Unknown]
